FAERS Safety Report 4493462-5 (Version None)
Quarter: 2004Q4

REPORT INFORMATION
  Report Type: 
  Country: None (occurrence: None)
  Receive Date: 20041105
  Receipt Date: 20041019
  Transmission Date: 20050328
  Serious: Yes (Death)
  Sender: FDA-Public Use
  Company Number: US-JNJFOC-20041005804

PATIENT
  Age: 31 Year
  Sex: Male

DRUGS (8)
  1. FENTANYL [Suspect]
     Indication: DRUG USE FOR UNKNOWN INDICATION
     Route: 065
  2. OXYCODONE [Concomitant]
  3. METHAMPHETAMINE HCL [Concomitant]
  4. ALPRAZOLAM [Concomitant]
  5. CARISOPRODOL [Concomitant]
  6. MEPERIDINE HCL [Concomitant]
  7. DIAZEPAM [Concomitant]
  8. PAROXETINE [Concomitant]

REACTIONS (3)
  - ACCIDENTAL DEATH [None]
  - DRUG ABUSER [None]
  - TOXICOLOGIC TEST ABNORMAL [None]
